FAERS Safety Report 8490568-0 (Version None)
Quarter: 2012Q3

REPORT INFORMATION
  Report Type: 
  Country: None (occurrence: None)
  Receive Date: 20120705
  Receipt Date: 20120626
  Transmission Date: 20120928
  Serious: Yes (Hospitalization, Other)
  Sender: FDA-Public Use
  Company Number: DE-ABBOTT-11P-062-0710378-00

PATIENT
  Sex: Female
  Weight: 65 kg

DRUGS (8)
  1. HUMIRA [Suspect]
     Dates: start: 20100802
  2. REMICADE [Concomitant]
     Dates: start: 20120510
  3. HUMIRA [Suspect]
     Indication: CROHN'S DISEASE
     Route: 058
     Dates: start: 20100816, end: 20101201
  4. CORTISONE ACETATE [Concomitant]
     Indication: PRODUCT USED FOR UNKNOWN INDICATION
     Dates: start: 20091101
  5. HUMIRA [Suspect]
     Dates: start: 20100719
  6. MESALAMINE [Concomitant]
     Indication: PRODUCT USED FOR UNKNOWN INDICATION
     Dates: start: 20090601
  7. HUMIRA [Suspect]
     Dates: start: 20101201, end: 20110117
  8. REMICADE [Concomitant]
     Indication: PRODUCT USED FOR UNKNOWN INDICATION
     Dates: start: 20120221, end: 20120402

REACTIONS (2)
  - NON-HODGKIN'S LYMPHOMA [None]
  - SARCOMA [None]
